FAERS Safety Report 16249532 (Version 1)
Quarter: 2019Q2

REPORT INFORMATION
  Report Type: Spontaneous
  Country: FR (occurrence: FR)
  Receive Date: 20190429
  Receipt Date: 20190429
  Transmission Date: 20190711
  Serious: Yes (Hospitalization)
  Sender: FDA-Public Use
  Company Number: FR-BAYER-2019-078936

PATIENT
  Age: 63 Year
  Sex: Male

DRUGS (1)
  1. CIFLOX 500 MG [Suspect]
     Active Substance: CIPROFLOXACIN
     Dosage: 1000 MG, UNK
     Route: 048

REACTIONS (1)
  - Ischaemia [Recovered/Resolved]

NARRATIVE: CASE EVENT DATE: 20150113
